FAERS Safety Report 5242308-6 (Version None)
Quarter: 2007Q1

REPORT INFORMATION
  Report Type: 
  Country: None (occurrence: None)
  Receive Date: 20070216
  Receipt Date: 20070216
  Transmission Date: 20070707
  Serious: Yes (Hospitalization)
  Sender: FDA-Public Use
  Company Number: None

PATIENT
  Age: 78 Year
  Sex: Male

DRUGS (14)
  1. BACTRIM DS [Suspect]
     Indication: INFECTION
     Dosage: 1 BID
     Dates: start: 20061129
  2. BUMETANIDE [Suspect]
     Indication: HYPERTENSION
     Dosage: 0.5 MG QAM
     Dates: start: 20041201
  3. VALSARTAN [Suspect]
     Dosage: 80 MG QD
     Dates: start: 20051001
  4. ZOCOR [Concomitant]
  5. TEMAZEPAM [Concomitant]
  6. GABAPENTIN [Concomitant]
  7. LORTAB [Concomitant]
  8. PROPOXYPHENE HYDROCHLORIDE [Concomitant]
  9. FERROUS SULFATE TAB [Concomitant]
  10. GLIPIZIDE [Concomitant]
  11. ALLOPURINOL SODIUM [Concomitant]
  12. PRAMIPEXOLE DIHYDROCHLORIDE [Concomitant]
  13. OMEPRAZOLE [Concomitant]
  14. DICYCLAMINE [Concomitant]

REACTIONS (2)
  - HYPERKALAEMIA [None]
  - RENAL FAILURE ACUTE [None]
